FAERS Safety Report 14531594 (Version 1)
Quarter: 2018Q1

REPORT INFORMATION
  Report Type: Spontaneous
  Country: ES (occurrence: ES)
  Receive Date: 20180214
  Receipt Date: 20180214
  Transmission Date: 20180509
  Serious: Yes (Hospitalization, Other)
  Sender: FDA-Public Use
  Company Number: ES-MYLANLABS-2018M1009475

PATIENT
  Age: 53 Year
  Sex: Male

DRUGS (1)
  1. TENOFOVIR [Suspect]
     Active Substance: TENOFOVIR
     Indication: PRODUCT USED FOR UNKNOWN INDICATION
     Dosage: 254 MG, QD
     Route: 048
     Dates: start: 2010, end: 20171218

REACTIONS (3)
  - Metabolic acidosis [Recovering/Resolving]
  - Acute kidney injury [Recovering/Resolving]
  - Hyperkalaemia [Recovering/Resolving]

NARRATIVE: CASE EVENT DATE: 20170511
